FAERS Safety Report 20526623 (Version 4)
Quarter: 2022Q2

REPORT INFORMATION
  Report Type: Report from Study
  Country: US (occurrence: US)
  Receive Date: 20220228
  Receipt Date: 20220629
  Transmission Date: 20220720
  Serious: Yes (Hospitalization, Other)
  Sender: FDA-Public Use
  Company Number: US-TAKEDA-2021TUS080737

PATIENT
  Sex: Male

DRUGS (3)
  1. MARIBAVIR [Suspect]
     Active Substance: MARIBAVIR
     Indication: Cytomegalovirus infection
     Dosage: 400 MILLIGRAM, BID
     Route: 065
     Dates: start: 20211205
  2. MARIBAVIR [Suspect]
     Active Substance: MARIBAVIR
     Indication: Transplantation complication
     Dosage: 400 MILLIGRAM, BID
     Route: 048
     Dates: start: 20211212
  3. ACYCLOVIR [Concomitant]
     Active Substance: ACYCLOVIR
     Dosage: UNK UNK, BID
     Route: 065

REACTIONS (5)
  - Renal disorder [Unknown]
  - Atrial fibrillation [Unknown]
  - Unevaluable event [Not Recovered/Not Resolved]
  - Fatigue [Unknown]
  - Taste disorder [Unknown]
